FAERS Safety Report 8182724-6 (Version None)
Quarter: 2012Q1

REPORT INFORMATION
  Report Type: 
  Country: None (occurrence: None)
  Receive Date: 20120305
  Receipt Date: 20120301
  Transmission Date: 20120608
  Serious: No
  Sender: FDA-Public Use
  Company Number: US-PFIZER INC-2012056541

PATIENT
  Sex: Female

DRUGS (1)
  1. ADVIL CONGESTION RELIEF [Suspect]
     Indication: NASAL CONGESTION
     Dosage: ONLY ONCE
     Route: 048
     Dates: start: 20120229

REACTIONS (3)
  - DYSPNOEA [None]
  - CHOKING SENSATION [None]
  - MOVEMENT DISORDER [None]
